FAERS Safety Report 4443511-5 (Version None)
Quarter: 2004Q3

REPORT INFORMATION
  Report Type: 
  Country: None (occurrence: None)
  Receive Date: 20040908
  Receipt Date: 20040831
  Transmission Date: 20050211
  Serious: Yes (Death)
  Sender: FDA-Public Use
  Company Number: FI-JNJFOC-20040900018

PATIENT
  Age: 61 Year
  Sex: Male

DRUGS (4)
  1. TRAMAL [Suspect]
     Route: 049
  2. PARACETAMOL [Suspect]
     Route: 049
  3. PANACOD [Suspect]
     Route: 049
  4. PANACOD [Suspect]
     Route: 049

REACTIONS (6)
  - COMA HEPATIC [None]
  - DRUG INTERACTION [None]
  - HEPATIC CIRRHOSIS [None]
  - HEPATIC FAILURE [None]
  - HEPATIC NECROSIS [None]
  - LOWER LIMB FRACTURE [None]
